FAERS Safety Report 10565414 (Version 1)
Quarter: 2014Q4

REPORT INFORMATION
  Report Type: Spontaneous
  Country: US (occurrence: US)
  Receive Date: 20141105
  Receipt Date: 20141105
  Transmission Date: 20150529
  Serious: No
  Sender: FDA-Public Use
  Company Number: US-SHIRE-US201407286

PATIENT
  Sex: Female
  Weight: 61.22 kg

DRUGS (4)
  1. VYVANSE [Suspect]
     Active Substance: LISDEXAMFETAMINE DIMESYLATE
     Indication: ATTENTION DEFICIT/HYPERACTIVITY DISORDER
     Dosage: 20 MG, 1X/DAY:QD
     Route: 048
     Dates: start: 201310
  2. VYVANSE [Suspect]
     Active Substance: LISDEXAMFETAMINE DIMESYLATE
     Dosage: UNK (1/2 OF A 30 MG CAPSULE), OTHER (WHEN OUT OF 20 MG CAPSULES)
     Route: 048
  3. MAXZIDE [Concomitant]
     Active Substance: HYDROCHLOROTHIAZIDE\TRIAMTERENE
     Indication: FLUID RETENTION
     Dosage: 50 MG (2 25 MG TABLETS), UNK (A DAY)
     Route: 048
  4. VYVANSE [Suspect]
     Active Substance: LISDEXAMFETAMINE DIMESYLATE
     Dosage: 30 MG, ONE DOSE
     Route: 048

REACTIONS (3)
  - Incorrect dose administered [Unknown]
  - Therapeutic response unexpected [Not Recovered/Not Resolved]
  - Intentional product use issue [Recovered/Resolved]
